FAERS Safety Report 7594118-2 (Version None)
Quarter: 2011Q3

REPORT INFORMATION
  Report Type: 
  Country: None (occurrence: None)
  Receive Date: 20110706
  Receipt Date: 20110701
  Transmission Date: 20111222
  Serious: Yes (Death, Life-Threatening, Hospitalization)
  Sender: FDA-Public Use
  Company Number: US-GILEAD-2011-0041186

PATIENT
  Sex: Female
  Weight: 116.68 kg

DRUGS (6)
  1. LETAIRIS [Suspect]
     Indication: PULMONARY HYPERTENSION
     Route: 048
     Dates: start: 20090715, end: 20110618
  2. PRAVASTATIN [Concomitant]
     Indication: HYPERLIPIDAEMIA
  3. GEODON [Concomitant]
     Indication: SCHIZOPHRENIA
  4. ADVAIR DISKUS 100/50 [Concomitant]
     Indication: CHRONIC OBSTRUCTIVE PULMONARY DISEASE
  5. SPIRIVA [Concomitant]
     Indication: CHRONIC OBSTRUCTIVE PULMONARY DISEASE
  6. LANTUS [Concomitant]
     Indication: DIABETES MELLITUS

REACTIONS (3)
  - RENAL FAILURE [None]
  - PNEUMONIA [None]
  - SEPSIS [None]
